FAERS Safety Report 5986427-5 (Version None)
Quarter: 2008Q4

REPORT INFORMATION
  Report Type: 
  Country: None (occurrence: None)
  Receive Date: 20081209
  Receipt Date: 20080116
  Transmission Date: 20090506
  Serious: No
  Sender: FDA-Public Use
  Company Number: US-AMGEN-KDL260944

PATIENT
  Sex: Male

DRUGS (2)
  1. ENBREL [Suspect]
     Indication: RHEUMATOID ARTHRITIS
     Route: 058
     Dates: start: 20061105
  2. ARAVA [Concomitant]
     Dates: start: 20080116

REACTIONS (3)
  - ABDOMINAL PAIN [None]
  - ARTHRALGIA [None]
  - PAIN [None]
